FAERS Safety Report 6525105-0 (Version None)
Quarter: 2010Q1

REPORT INFORMATION
  Report Type: 
  Country: None (occurrence: None)
  Receive Date: 20100104
  Receipt Date: 20091225
  Transmission Date: 20100710
  Serious: Yes (Death)
  Sender: FDA-Public Use
  Company Number: JP-ROCHE-676901

PATIENT
  Sex: Male

DRUGS (5)
  1. AVASTIN [Suspect]
     Indication: LARGE INTESTINE CARCINOMA
     Route: 041
  2. ELPLAT [Concomitant]
     Route: 041
  3. FLUOROURACIL [Concomitant]
     Route: 041
  4. LEVOFOLINATE [Concomitant]
     Route: 041
  5. IRINOTECAN HCL [Concomitant]
     Route: 041

REACTIONS (2)
  - NEUTROPENIA [None]
  - PNEUMONIA ASPIRATION [None]
